FAERS Safety Report 7810387-5 (Version None)
Quarter: 2011Q4

REPORT INFORMATION
  Report Type: 
  Country: None (occurrence: None)
  Receive Date: 20111012
  Receipt Date: 20111004
  Transmission Date: 20120403
  Serious: Yes (Hospitalization, Other)
  Sender: FDA-Public Use
  Company Number: US-ABBOTT-11P-163-0860586-00

PATIENT
  Sex: Male
  Weight: 77.18 kg

DRUGS (11)
  1. ZEMPLAR [Suspect]
     Indication: RENAL FAILURE
  2. LEVAQUIN [Suspect]
     Indication: CHEST WALL ABSCESS
     Dates: start: 20110901
  3. WARFARIN SODIUM [Concomitant]
     Indication: CARDIAC DISORDER
  4. LIPITOR [Concomitant]
     Indication: BLOOD CHOLESTEROL INCREASED
  5. CARVEDILOL [Concomitant]
     Indication: CARDIAC DISORDER
  6. NIACIN [Concomitant]
     Indication: PRODUCT USED FOR UNKNOWN INDICATION
  7. ARICEPT [Concomitant]
     Indication: DEMENTIA
  8. VITAMIN TAB [Concomitant]
     Indication: VITAMIN SUPPLEMENTATION
  9. SODIUM BICARBONATE [Concomitant]
     Indication: RENAL DISORDER
  10. ZEMPLAR [Suspect]
     Indication: RENAL DISORDER
     Dosage: MON THROUGH FRI ONLY, IN THE EVENING
     Dates: start: 20090101
  11. ARANESP [Concomitant]
     Indication: ANAEMIA

REACTIONS (5)
  - HAEMOGLOBIN DECREASED [None]
  - BLOOD CREATININE INCREASED [None]
  - SKIN CANCER [None]
  - CHEST WALL ABSCESS [None]
  - ARTERIOVENOUS SHUNT OPERATION [None]
